FAERS Safety Report 20093844 (Version 3)
Quarter: 2022Q3

REPORT INFORMATION
  Report Type: Report from Study
  Country: US (occurrence: US)
  Receive Date: 20211121
  Receipt Date: 20220831
  Transmission Date: 20221027
  Serious: Yes (Other)
  Sender: FDA-Public Use
  Company Number: US-ABBVIE-21K-163-4167418-00

PATIENT
  Sex: Male

DRUGS (4)
  1. SKYRIZI [Suspect]
     Active Substance: RISANKIZUMAB-RZAA
     Indication: Psoriasis
     Route: 058
  2. PFIZER-BIONTECH COVID-19 VACCINE [Concomitant]
     Active Substance: TOZINAMERAN
     Indication: COVID-19 immunisation
     Route: 030
     Dates: start: 202106, end: 202106
  3. PFIZER-BIONTECH COVID-19 VACCINE [Concomitant]
     Active Substance: TOZINAMERAN
     Route: 030
     Dates: start: 202107, end: 202107
  4. PFIZER-BIONTECH COVID-19 VACCINE [Concomitant]
     Active Substance: TOZINAMERAN
     Route: 030
     Dates: start: 202201, end: 202201

REACTIONS (18)
  - Neoplasm malignant [Recovered/Resolved]
  - Colon cancer [Unknown]
  - Renal failure [Unknown]
  - Cataract [Not Recovered/Not Resolved]
  - Gastric haemorrhage [Unknown]
  - Tendon operation [Unknown]
  - Rotator cuff repair [Unknown]
  - Hypertension [Not Recovered/Not Resolved]
  - Dizziness [Not Recovered/Not Resolved]
  - Pruritus [Not Recovered/Not Resolved]
  - Dry skin [Not Recovered/Not Resolved]
  - Dehydration [Unknown]
  - Immunodeficiency [Not Recovered/Not Resolved]
  - Cardiac disorder [Unknown]
  - Ulcer [Unknown]
  - Liver disorder [Unknown]
  - Fatigue [Not Recovered/Not Resolved]
  - Infection [Recovered/Resolved]
